FAERS Safety Report 23975610 (Version 1)
Quarter: 2024Q2

REPORT INFORMATION
  Report Type: Spontaneous
  Country: US (occurrence: US)
  Receive Date: 20240614
  Receipt Date: 20240614
  Transmission Date: 20240716
  Serious: No
  Sender: FDA-Public Use
  Company Number: US-BRISTOL-MYERS SQUIBB COMPANY-2024-095965

PATIENT
  Age: 78 Year
  Sex: Male

DRUGS (1)
  1. REVLIMID [Suspect]
     Active Substance: LENALIDOMIDE
     Indication: Diffuse large B-cell lymphoma
     Dosage: QD MONDAY THROUGH FRIDAY FOR 21D ON 7D OF
     Route: 048

REACTIONS (4)
  - Rash macular [Unknown]
  - Pruritus [Unknown]
  - Off label use [Unknown]
  - Drug hypersensitivity [Unknown]
